FAERS Safety Report 5463682-1 (Version None)
Quarter: 2007Q3

REPORT INFORMATION
  Report Type: 
  Country: None (occurrence: None)
  Receive Date: 20070919
  Receipt Date: 20070904
  Transmission Date: 20080115
  Serious: Yes (Other)
  Sender: FDA-Public Use
  Company Number: 236353K07USA

PATIENT
  Age: 58 Year
  Sex: Female
  Weight: 79.8331 kg

DRUGS (18)
  1. REBIF [Suspect]
     Indication: MULTIPLE SCLEROSIS
     Dosage: 44 MCG, 3 IN 1 WEEKS, SUBCUTANEOUS
     Route: 058
     Dates: start: 20060327, end: 20070714
  2. NEURONTIN [Concomitant]
  3. CRESTOR [Concomitant]
  4. MOBIC [Concomitant]
  5. BENICAR [Concomitant]
  6. PREMARIN [Concomitant]
  7. VERAPAMIL SR (VERAPAMIL) [Concomitant]
  8. PROVIGIL [Concomitant]
  9. ZETIA [Concomitant]
  10. TRICOR [Concomitant]
  11. PLAVIX [Concomitant]
  12. FAMVIR [Concomitant]
  13. TIZANIDINE HCL (TIZANIDINE HYDROCHLORIDE) [Concomitant]
  14. LEXAPRO [Concomitant]
  15. WELLBUTRIN [Concomitant]
  16. FIORICET (AXOTAL) [Concomitant]
  17. MULTI COMPLETE (MULTIVITAMINS) [Concomitant]
  18. FIBERCON (POLYCARBOPHIL CALCIUM) [Concomitant]

REACTIONS (6)
  - ANAEMIA [None]
  - ASTHENIA [None]
  - FATIGUE [None]
  - LEUKOPENIA [None]
  - PETIT MAL EPILEPSY [None]
  - SOMNOLENCE [None]
